FAERS Safety Report 14910959 (Version 3)
Quarter: 2018Q3

REPORT INFORMATION
  Report Type: Report from Study
  Country: JP (occurrence: JP)
  Receive Date: 20180517
  Receipt Date: 20180906
  Transmission Date: 20181010
  Serious: Yes (Death)
  Sender: FDA-Public Use
  Company Number: JP-AMGEN-JPNCT2018067510

PATIENT
  Age: 76 Year
  Sex: Male
  Weight: 69 kg

DRUGS (4)
  1. DARBEPOETIN ALFA [Suspect]
     Active Substance: DARBEPOETIN ALFA
     Indication: MYELODYSPLASTIC SYNDROME
     Dosage: 240 MCG, QWK
     Route: 058
     Dates: start: 20150507, end: 20150618
  2. MAGLAX [Concomitant]
     Active Substance: MAGNESIUM OXIDE
     Indication: CONSTIPATION
     Dosage: 1500 MG, UNK
     Route: 048
  3. MYSLEE [Concomitant]
     Active Substance: ZOLPIDEM TARTRATE
     Indication: INSOMNIA
     Dosage: 10 MG, UNK
     Route: 048
  4. VIDAZA [Concomitant]
     Active Substance: AZACITIDINE
     Indication: MYELODYSPLASTIC SYNDROME
     Dosage: 130 MG, UNK
     Route: 065
     Dates: end: 20151116

REACTIONS (1)
  - Pleural effusion [Fatal]

NARRATIVE: CASE EVENT DATE: 20170925
